FAERS Safety Report 13644157 (Version 11)
Quarter: 2018Q3

REPORT INFORMATION
  Report Type: Report from Study
  Country: US (occurrence: US)
  Receive Date: 20170612
  Receipt Date: 20180809
  Transmission Date: 20181010
  Serious: Yes (Hospitalization)
  Sender: FDA-Public Use
  Company Number: US-ACTELION-A-US2017-154442

PATIENT
  Age: 35 Year
  Sex: Female
  Weight: 66.67 kg

DRUGS (4)
  1. OPSUMIT [Suspect]
     Active Substance: MACITENTAN
     Indication: PULMONARY HYPERTENSION
     Dosage: 10 MG, QD
     Route: 048
  2. COUMADIN [Concomitant]
     Active Substance: WARFARIN SODIUM
  3. REMODULIN [Concomitant]
     Active Substance: TREPROSTINIL
     Dosage: 79 NG/KG, PER MIN
     Route: 042
  4. METOCLOPRAMIDE HCL [Suspect]
     Active Substance: METOCLOPRAMIDE HYDROCHLORIDE
     Indication: PRODUCT USED FOR UNKNOWN INDICATION
     Dosage: 5 MG, UNK
     Route: 065

REACTIONS (26)
  - Weight decreased [Unknown]
  - Chest discomfort [Unknown]
  - Gastrointestinal disorder [Unknown]
  - Abscess jaw [Unknown]
  - Fatigue [Unknown]
  - Pulmonary arterial hypertension [Unknown]
  - Stress [Unknown]
  - Impaired gastric emptying [Unknown]
  - Tooth abscess [Unknown]
  - Tooth infection [Unknown]
  - Mental disorder [Unknown]
  - Depression [Unknown]
  - Throat tightness [Unknown]
  - Heart rate increased [Recovering/Resolving]
  - Suicidal ideation [Unknown]
  - Palpitations [Unknown]
  - Memory impairment [Unknown]
  - Clostridium difficile infection [Unknown]
  - Dysphagia [Unknown]
  - Decreased appetite [Unknown]
  - Oxygen saturation decreased [Recovering/Resolving]
  - Oesophageal motility disorder [Unknown]
  - Tooth extraction [Unknown]
  - Amnesia [Unknown]
  - Tachycardia [Unknown]
  - Device leakage [Recovering/Resolving]

NARRATIVE: CASE EVENT DATE: 20170506
